FAERS Safety Report 17121448 (Version 1)
Quarter: 2019Q4

REPORT INFORMATION
  Report Type: Spontaneous
  Country: US (occurrence: US)
  Receive Date: 20191205
  Receipt Date: 20191205
  Transmission Date: 20200122
  Serious: Yes (Hospitalization)
  Sender: FDA-Public Use
  Company Number: None

PATIENT
  Age: 70 Year
  Sex: Female

DRUGS (12)
  1. SERTRALINE [Concomitant]
     Active Substance: SERTRALINE HYDROCHLORIDE
  2. HYDROXYZ HCL [Concomitant]
     Active Substance: HYDROXYZINE HYDROCHLORIDE
  3. DICLOFENAC GEL [Concomitant]
     Active Substance: DICLOFENAC
  4. ONDANSETRON [Concomitant]
     Active Substance: ONDANSETRON
  5. TIZANIDINE. [Concomitant]
     Active Substance: TIZANIDINE
  6. ENBREL [Suspect]
     Active Substance: ETANERCEPT
     Indication: RHEUMATOID ARTHRITIS
     Dosage: ?          OTHER FREQUENCY:ONCE WEEKLY;?
     Route: 058
     Dates: start: 20180604
  7. OXYCODONE [Concomitant]
     Active Substance: OXYCODONE
  8. LIDOCAINE. [Concomitant]
     Active Substance: LIDOCAINE
  9. SILVER SULFA [Concomitant]
  10. TRAZODONE [Concomitant]
     Active Substance: TRAZODONE HYDROCHLORIDE
  11. POLYETH GLYC POW [Concomitant]
  12. FAMOTIDINE. [Concomitant]
     Active Substance: FAMOTIDINE

REACTIONS (2)
  - Therapy cessation [None]
  - Herpes zoster [None]
